FAERS Safety Report 11091670 (Version 1)
Quarter: 2015Q2

REPORT INFORMATION
  Report Type: Spontaneous
  Country: US (occurrence: US)
  Receive Date: 20150505
  Receipt Date: 20150505
  Transmission Date: 20150821
  Serious: No
  Sender: FDA-Public Use
  Company Number: US-009507513-1504USA020601

PATIENT
  Sex: Female

DRUGS (1)
  1. DULERA [Suspect]
     Active Substance: FORMOTEROL FUMARATE DIHYDRATE\MOMETASONE FUROATE
     Dosage: 100/5MCRG, 1 PUFF IN MORNING AND 1 PUFF IN EVENING
     Dates: start: 201304

REACTIONS (4)
  - Drug dose omission [Unknown]
  - No adverse event [Unknown]
  - Device malfunction [Unknown]
  - Product container issue [Unknown]

NARRATIVE: CASE EVENT DATE: 201504
